FAERS Safety Report 15227015 (Version 1)
Quarter: 2018Q3

REPORT INFORMATION
  Report Type: Spontaneous
  Country: KR (occurrence: KR)
  Receive Date: 20180801
  Receipt Date: 20180801
  Transmission Date: 20181010
  Serious: Yes (Hospitalization, Other)
  Sender: FDA-Public Use
  Company Number: KR-PFIZER INC-2018299688

PATIENT
  Age: 37 Year
  Sex: Female

DRUGS (4)
  1. NOREPINEPHRINE BITARTRATE. [Suspect]
     Active Substance: NOREPINEPHRINE BITARTRATE
     Indication: HYPOVOLAEMIC SHOCK
     Dosage: UNK (0.4 MCG/MIN/KG)
  2. DOPAMINE [Concomitant]
     Active Substance: DOPAMINE\DOPAMINE HYDROCHLORIDE
     Indication: HYPOVOLAEMIC SHOCK
     Dosage: UNK  (8 MCG/MIN/KG)
  3. EPINEPHRINE. [Suspect]
     Active Substance: EPINEPHRINE
     Indication: HYPOVOLAEMIC SHOCK
     Dosage: UNK (0.1 MCG/MIN/KG)
  4. VASOPRESSIN. [Suspect]
     Active Substance: VASOPRESSIN
     Indication: HYPOVOLAEMIC SHOCK
     Dosage: UNK (0.04 U/MIN)

REACTIONS (2)
  - Ventricular hypokinesia [Recovering/Resolving]
  - Drug ineffective [Recovering/Resolving]
